FAERS Safety Report 24286401 (Version 1)
Quarter: 2024Q3

REPORT INFORMATION
  Report Type: Spontaneous
  Country: CA (occurrence: CA)
  Receive Date: 20240905
  Receipt Date: 20240905
  Transmission Date: 20241017
  Serious: Yes (Other)
  Sender: CELLTRION
  Company Number: CA-CELLTRION INC.-2024CA020653

PATIENT

DRUGS (1)
  1. RITUXIMAB [Suspect]
     Active Substance: RITUXIMAB
     Indication: Immune thrombocytopenia
     Dosage: 1.0 DOSAGE FORMS
     Route: 041

REACTIONS (3)
  - Sensation of foreign body [Unknown]
  - Throat irritation [Unknown]
  - Intentional product use issue [Unknown]
